FAERS Safety Report 6119109-X (Version None)
Quarter: 2009Q1

REPORT INFORMATION
  Report Type: 
  Country: None (occurrence: None)
  Receive Date: 20090316
  Receipt Date: 20090311
  Transmission Date: 20090719
  Serious: Yes (Hospitalization)
  Sender: FDA-Public Use
  Company Number: DE-CELGENEUS-062-C5013-07070004

PATIENT
  Sex: Female
  Weight: 56 kg

DRUGS (6)
  1. CC-5013 [Suspect]
     Route: 048
     Dates: start: 20070516, end: 20070615
  2. TOREM 10 [Concomitant]
     Indication: PROPHYLAXIS
     Route: 048
     Dates: start: 20040101
  3. METOPROLOL TARTRATE [Concomitant]
     Indication: PROPHYLAXIS
     Route: 048
     Dates: start: 20040101
  4. HEPARIN GEL [Concomitant]
     Dosage: 30,000 IE
     Route: 048
     Dates: start: 20070501
  5. VENOSTASIN RETARD [Concomitant]
     Route: 048
     Dates: start: 20070516, end: 20070521
  6. EUCERIN [Concomitant]
     Route: 048
     Dates: start: 20070529

REACTIONS (1)
  - ERYSIPELAS [None]
